FAERS Safety Report 11206622 (Version 1)
Quarter: 2015Q2

REPORT INFORMATION
  Report Type: Spontaneous
  Country: US (occurrence: US)
  Receive Date: 20150622
  Receipt Date: 20150622
  Transmission Date: 20150821
  Serious: Yes (Other)
  Sender: FDA-Public Use
  Company Number: US-BAYER-2015-360364

PATIENT
  Sex: Male

DRUGS (2)
  1. COPPERTONE SPORT SUNSCREEN SPF 50 [Suspect]
     Active Substance: AVOBENZONE\HOMOSALATE\OCTISALATE\OCTOCRYLENE\OXYBENZONE
  2. COPPERTONE [Suspect]
     Active Substance: OCTINOXATE\OCTOCRYLENE

REACTIONS (2)
  - Eye burns [None]
  - Accidental exposure to product [None]
